FAERS Safety Report 6018677-6 (Version None)
Quarter: 2008Q4

REPORT INFORMATION
  Report Type: 
  Country: None (occurrence: None)
  Receive Date: 20081222
  Receipt Date: 20081208
  Transmission Date: 20090506
  Serious: Yes (Hospitalization)
  Sender: FDA-Public Use
  Company Number: MEDI-0007595

PATIENT
  Age: 50 Year
  Sex: Male
  Weight: 72.5755 kg

DRUGS (3)
  1. ETHYOL [Suspect]
     Indication: RADIOTHERAPY
     Dosage: 500 MG, 1 IN  1 D, SUBCUTANEOUS
     Route: 058
     Dates: start: 20081124, end: 20081204
  2. RADIATION THERAPY [Concomitant]
  3. UNKNOWN CHEMOTHERAPY [Concomitant]

REACTIONS (6)
  - FEEDING TUBE COMPLICATION [None]
  - INJECTION SITE ERYTHEMA [None]
  - INJECTION SITE OEDEMA [None]
  - INJECTION SITE WARMTH [None]
  - MALAISE [None]
  - PYREXIA [None]
